FAERS Safety Report 8617406-7 (Version None)
Quarter: 2012Q3

REPORT INFORMATION
  Report Type: 
  Country: None (occurrence: None)
  Receive Date: 20120823
  Receipt Date: 20120731
  Transmission Date: 20120928
  Serious: Yes (Other)
  Sender: FDA-Public Use
  Company Number: JP-009507513-2012SP026960

PATIENT

DRUGS (33)
  1. ONEALFA [Concomitant]
     Indication: OSTEOPOROSIS
     Dosage: UNK UNK, ONCE
     Route: 048
  2. SODIUM BICARBONATE [Concomitant]
     Indication: PRODUCT USED FOR UNKNOWN INDICATION
     Dosage: 7 % (250 ML) X1
     Route: 065
     Dates: start: 20120428, end: 20120429
  3. TALION (BEPOTASTINE BESYLATE) [Concomitant]
     Indication: PROPHYLAXIS
     Route: 048
     Dates: start: 20120424
  4. ANTIVIRAL (UNSPECIFIED) [Suspect]
     Indication: HEPATITIS C
     Dosage: 1500 MG, QD
     Route: 048
     Dates: start: 20120424, end: 20120427
  5. URSO 250 [Concomitant]
     Indication: HEPATITIS C
     Dosage: 300 MG, QD
     Route: 048
  6. DICLOFENAC SODIUM [Concomitant]
     Indication: PROPHYLAXIS
     Dosage: 25MG/DAY AS NEEDED
     Route: 054
     Dates: start: 20120424
  7. RABEPRAZOLE SODIUM [Concomitant]
     Indication: PRODUCT USED FOR UNKNOWN INDICATION
     Dosage: 10 MG, QD
     Route: 048
     Dates: start: 20120429
  8. URSO 250 [Concomitant]
     Route: 048
  9. PROMAC (NITROFURANTOIN) [Concomitant]
     Indication: GASTRITIS
     Dosage: FORMULATION:POR
     Route: 048
  10. DEPAS [Concomitant]
     Indication: DEPRESSION
     Dosage: 0.5MG/DAY AS NEEDED
     Route: 048
  11. CYANOCOBALAMIN [Concomitant]
     Indication: PRODUCT USED FOR UNKNOWN INDICATION
     Dosage: 1500 ?G, QD
     Route: 065
  12. TELAVIC [Suspect]
     Indication: HEPATITIS C
     Route: 048
     Dates: start: 20120424, end: 20120427
  13. PORTOLAC [Concomitant]
     Indication: HEPATITIS C
     Route: 048
  14. CONIEL [Concomitant]
     Route: 048
  15. NEXIUM [Concomitant]
     Indication: PROPHYLAXIS
     Dosage: 20 MG, QD
     Route: 048
     Dates: start: 20120424
  16. DEXTROSE (+) ELECTROLYTES (UNSPECIFIED) (+) SODIUM ACETATE [Concomitant]
     Dosage: 500ML X 1
     Route: 065
     Dates: start: 20120427, end: 20120504
  17. HYDROXOCOBALAMIN ACETATE (+) PYRIDOXINE HYDROCHLORIDE (+) THIAMINE DIS [Concomitant]
     Indication: PRODUCT USED FOR UNKNOWN INDICATION
     Dosage: NEOLAMIN 3B X 1
     Route: 065
     Dates: start: 20120427, end: 20120504
  18. MAGMITT [Concomitant]
     Indication: GASTRITIS
     Dosage: FORMULATION: POR
     Route: 048
  19. DEPAS [Concomitant]
     Dosage: 0.5MG/DAY AS NEEDED
     Route: 048
  20. BIO THREE [Concomitant]
     Indication: PRODUCT USED FOR UNKNOWN INDICATION
     Dosage: 6 DF, QD
     Route: 065
     Dates: start: 20120428
  21. SOLU-MEDROL [Concomitant]
     Indication: PRODUCT USED FOR UNKNOWN INDICATION
     Dosage: 500 ML X 1
     Route: 065
     Dates: start: 20120428, end: 20120430
  22. VITAMIN B12 [Concomitant]
     Indication: NEURALGIA
     Dosage: 1500 UNKNOWN, ONCE
     Route: 048
  23. ONEALFA [Concomitant]
     Indication: PRODUCT USED FOR UNKNOWN INDICATION
     Dosage: 0.5 ?G, QD
     Route: 065
  24. DEXTROSE (+) ELECTROLYTES (UNSPECIFIED) (+) SODIUM ACETATE [Concomitant]
     Indication: PRODUCT USED FOR UNKNOWN INDICATION
     Dosage: 500 ML X 1
     Route: 065
     Dates: start: 20120427, end: 20120504
  25. RABEPRAZOLE SODIUM [Concomitant]
     Indication: PROPHYLAXIS
  26. PROMAC (POLAPREZINC) [Concomitant]
     Indication: GASTRITIS
     Route: 048
  27. AZUNOL (SODIUM GUALENATE) [Concomitant]
     Indication: STOMATITIS
     Dosage: PROPER QUANTITY/DAY
     Route: 049
  28. VOLTAREN [Concomitant]
     Indication: PROPHYLAXIS
     Dosage: 25MG/DAY AS NEEDED
     Route: 054
     Dates: start: 20120424
  29. PEG-INTRON [Suspect]
     Indication: HEPATITIS C
     Dosage: 1.0MCG/KG/WEEK
     Route: 058
     Dates: start: 20120424, end: 20120427
  30. REBETOL [Suspect]
     Indication: HEPATITIS C
     Dosage: 400 MG, QD
     Route: 048
     Dates: start: 20120424, end: 20120427
  31. CONIEL [Concomitant]
     Indication: HYPERTENSION
     Dosage: FORMULATION:POR
     Route: 048
  32. MENATETRENONE [Concomitant]
     Indication: PRODUCT USED FOR UNKNOWN INDICATION
     Dosage: KAYTWO N X 1
     Route: 065
     Dates: start: 20120427, end: 20120504
  33. MAGNESIUM OXIDE [Concomitant]
     Indication: GASTRITIS
     Route: 048

REACTIONS (1)
  - RENAL IMPAIRMENT [None]
